FAERS Safety Report 10342139 (Version 2)
Quarter: 2014Q3

REPORT INFORMATION
  Report Type: Spontaneous
  Country: US (occurrence: None)
  Receive Date: 20140723
  Receipt Date: 20140815
  Transmission Date: 20150326
  Serious: Yes (Life-Threatening, Hospitalization, Disabling)
  Sender: FDA-Public Use
  Company Number: 2014AP003625

PATIENT
  Age: 64 Year
  Sex: Male
  Weight: 70 kg

DRUGS (3)
  1. FERRIPROX [Suspect]
     Active Substance: DEFERIPRONE
     Indication: IRON METABOLISM DISORDER
     Route: 048
     Dates: start: 20140428, end: 20140606
  2. ALLEGRA (FEXOFENADINE HYDROCHLORIDE) [Concomitant]
  3. LOSARTAN POTASSIUM (LOSARTAN POTASSIUM) [Concomitant]
     Active Substance: LOSARTAN POTASSIUM

REACTIONS (3)
  - Cerebrovascular accident [None]
  - Hypotension [None]
  - Hemiplegia [None]

NARRATIVE: CASE EVENT DATE: 20140606
